FAERS Safety Report 7260146-X (Version None)
Quarter: 2011Q1

REPORT INFORMATION
  Report Type: 
  Country: None (occurrence: None)
  Receive Date: 20110130
  Receipt Date: 20101015
  Transmission Date: 20110831
  Serious: No
  Sender: FDA-Public Use
  Company Number: US-ABBOTT-10P-163-0679229-00

PATIENT
  Sex: Male
  Weight: 88.53 kg

DRUGS (6)
  1. PREVACID AC [Concomitant]
     Indication: PRODUCT USED FOR UNKNOWN INDICATION
  2. UNKNOWN HIGH BLOOD PRESSURE MEDICATION [Concomitant]
     Indication: HYPERTENSION
  3. MULTI-VITAMIN [Concomitant]
     Indication: PRODUCT USED FOR UNKNOWN INDICATION
  4. HUMIRA [Suspect]
     Indication: CROHN'S DISEASE
     Route: 058
  5. UNKNOWN HEADACHE MEDICATION [Concomitant]
     Indication: HEADACHE
  6. HUMIRA [Suspect]
     Indication: RHEUMATOID ARTHRITIS

REACTIONS (4)
  - ILL-DEFINED DISORDER [None]
  - ARTHRALGIA [None]
  - DRY EYE [None]
  - VISUAL IMPAIRMENT [None]
